FAERS Safety Report 10060960 (Version 1)
Quarter: 2014Q2

REPORT INFORMATION
  Report Type: Spontaneous
  Country: US (occurrence: US)
  Receive Date: 20140405
  Receipt Date: 20140405
  Transmission Date: 20141212
  Serious: Yes (Other)
  Sender: FDA-Public Use
  Company Number: US-ABBVIE-14P-163-1218702-00

PATIENT
  Sex: Male
  Weight: 79.45 kg

DRUGS (4)
  1. LUPRON DEPOT [Suspect]
     Indication: PROSTATE CANCER
     Dates: start: 2004, end: 2005
  2. ANDROGEL [Suspect]
     Indication: HOT FLUSH
     Dosage: 50 MG STICK PACK
     Dates: start: 2005, end: 201403
  3. ANDROGEL [Suspect]
     Dates: start: 201403
  4. ZOMETA [Concomitant]
     Indication: PROSTATE CANCER

REACTIONS (8)
  - Atrial fibrillation [Not Recovered/Not Resolved]
  - Off label use [Not Recovered/Not Resolved]
  - Incorrect dose administered [Not Recovered/Not Resolved]
  - Hot flush [Recovered/Resolved]
  - Dyspnoea [Not Recovered/Not Resolved]
  - Fatigue [Not Recovered/Not Resolved]
  - Dizziness [Recovered/Resolved]
  - Cardiac disorder [Recovered/Resolved]
